FAERS Safety Report 19969132 (Version 1)
Quarter: 2021Q4

REPORT INFORMATION
  Report Type: Spontaneous
  Country: US (occurrence: US)
  Receive Date: 20211019
  Receipt Date: 20211019
  Transmission Date: 20220303
  Serious: No
  Sender: FDA-Public Use
  Company Number: US-UROGEN PHARMA LTD.-2021-UGN-000051

PATIENT
  Age: 60 Year
  Sex: Male

DRUGS (10)
  1. JELMYTO [Suspect]
     Active Substance: MITOMYCIN
     Indication: Transitional cell cancer of the renal pelvis and ureter
     Dosage: UNK, ONCE A WEEK (INSTILLATION)
     Dates: start: 202010, end: 202010
  2. JELMYTO [Suspect]
     Active Substance: MITOMYCIN
     Dosage: UNK, ONCE A WEEK (INSTILLATION)
     Dates: start: 2020, end: 2020
  3. JELMYTO [Suspect]
     Active Substance: MITOMYCIN
     Dosage: UNK, ONCE A WEEK (INSTILLATION)
     Dates: start: 2020, end: 2020
  4. JELMYTO [Suspect]
     Active Substance: MITOMYCIN
     Dosage: UNK, ONCE A WEEK (INSTILLATION)
     Dates: start: 2020, end: 2020
  5. JELMYTO [Suspect]
     Active Substance: MITOMYCIN
     Dosage: UNK, ONCE A WEEK (INSTILLATION)
     Dates: start: 2020, end: 2020
  6. JELMYTO [Suspect]
     Active Substance: MITOMYCIN
     Dosage: UNK, ONCE A WEEK (INSTILLATION)
     Dates: start: 2020, end: 2020
  7. JELMYTO [Suspect]
     Active Substance: MITOMYCIN
     Dosage: UNK, 1 TIME PER MONTH (INSTILLATION)
     Dates: start: 20210330, end: 20210330
  8. JELMYTO [Suspect]
     Active Substance: MITOMYCIN
     Dosage: UNK, 1 TIME PER MONTH (INSTILLATION)
     Dates: start: 20210427, end: 20210427
  9. JELMYTO [Suspect]
     Active Substance: MITOMYCIN
     Dosage: UNK, 1 TIME PER MONTH (INSTILLATION)
     Dates: start: 20210608, end: 20210608
  10. JELMYTO [Suspect]
     Active Substance: MITOMYCIN
     Dosage: UNK, 1 TIME PER MONTH (INSTILLATION)
     Dates: start: 20210716, end: 20210716

REACTIONS (2)
  - Urinary straining [Recovered/Resolved]
  - Abdominal pain [Recovered/Resolved]

NARRATIVE: CASE EVENT DATE: 20210716
